FAERS Safety Report 4800898-9 (Version None)
Quarter: 2005Q4

REPORT INFORMATION
  Report Type: 
  Country: None (occurrence: None)
  Receive Date: 20051011
  Receipt Date: 20050929
  Transmission Date: 20060501
  Serious: Yes (Other)
  Sender: FDA-Public Use
  Company Number: 2005P1000454

PATIENT
  Age: 70 Year
  Sex: Male

DRUGS (5)
  1. DEMECLOCYCLINE HCL [Suspect]
     Indication: INAPPROPRIATE ANTIDIURETIC HORMONE SECRETION
     Dosage: 900 MG; QD; PO
     Route: 048
     Dates: start: 20050902, end: 20050920
  2. AMLODIPINE BESYLATE [Concomitant]
  3. FAMOTIDINE [Concomitant]
  4. LOSARTAN POTASSIUM [Concomitant]
  5. VALSARTAN [Concomitant]

REACTIONS (1)
  - RENAL IMPAIRMENT [None]
